FAERS Safety Report 12450936 (Version 1)
Quarter: 2016Q2

REPORT INFORMATION
  Report Type: Spontaneous
  Country: US (occurrence: None)
  Receive Date: 20160608
  Receipt Date: 20160608
  Transmission Date: 20160815
  Serious: Yes (Hospitalization)
  Sender: FDA-Public Use
  Company Number: None

PATIENT
  Age: 64 Year
  Sex: Male
  Weight: 110 kg

DRUGS (25)
  1. PRAMOXINE [Concomitant]
     Active Substance: PRAMOXINE
  2. SPIRIVA [Concomitant]
     Active Substance: TIOTROPIUM BROMIDE MONOHYDRATE
  3. TOPAMAX [Concomitant]
     Active Substance: TOPIRAMATE
  4. RENVELA [Concomitant]
     Active Substance: SEVELAMER CARBONATE
  5. ADDERALL [Concomitant]
     Active Substance: AMPHETAMINE ASPARTATE\AMPHETAMINE SULFATE\DEXTROAMPHETAMINE SACCHARATE\DEXTROAMPHETAMINE SULFATE
  6. REMERON [Concomitant]
     Active Substance: MIRTAZAPINE
  7. ZEPATIER [Suspect]
     Active Substance: ELBASVIR\GRAZOPREVIR
     Indication: CHRONIC HEPATITIS C
     Dosage: 50MG/100MG QD ORAL
     Route: 048
     Dates: start: 20160429
  8. MILODRINE [Concomitant]
  9. SENSIPAR [Concomitant]
     Active Substance: CINACALCET HYDROCHLORIDE
  10. CALCITRIOL. [Concomitant]
     Active Substance: CALCITRIOL
  11. CLOBETASOL [Concomitant]
     Active Substance: CLOBETASOL
  12. NOVOLOG [Concomitant]
     Active Substance: INSULIN ASPART
  13. OMEPRAZOLE. [Concomitant]
     Active Substance: OMEPRAZOLE
  14. ATIVAN [Concomitant]
     Active Substance: LORAZEPAM
  15. ATARAX [Concomitant]
     Active Substance: HYDROXYZINE\HYDROXYZINE HYDROCHLORIDE
  16. LOMOTIL [Concomitant]
     Active Substance: ATROPINE SULFATE\DIPHENOXYLATE HYDROCHLORIDE
  17. ALBUTEROL. [Concomitant]
     Active Substance: ALBUTEROL
  18. CALCIUM ACETATE. [Concomitant]
     Active Substance: CALCIUM ACETATE
  19. HUMULIN N KWIKPEN [Concomitant]
  20. FLONASE [Concomitant]
     Active Substance: FLUTICASONE PROPIONATE
  21. MENTELUKAST [Concomitant]
  22. TRINTELLIX [Concomitant]
     Active Substance: VORTIOXETINE HYDROBROMIDE
  23. LISINOPRIL. [Concomitant]
     Active Substance: LISINOPRIL
  24. LYRICA [Concomitant]
     Active Substance: PREGABALIN
  25. AMBIEN [Concomitant]
     Active Substance: ZOLPIDEM TARTRATE

REACTIONS (3)
  - Sepsis [None]
  - Confusional state [None]
  - Pneumonia [None]

NARRATIVE: CASE EVENT DATE: 20160509
